FAERS Safety Report 24880479 (Version 1)
Quarter: 2025Q1

REPORT INFORMATION
  Report Type: Spontaneous
  Country: DE (occurrence: DE)
  Receive Date: 20250123
  Receipt Date: 20250123
  Transmission Date: 20250408
  Serious: Yes (Hospitalization)
  Sender: TEVA
  Company Number: DE-TEVA-VS-3288375

PATIENT
  Age: 41 Year
  Sex: Female
  Weight: 60 kg

DRUGS (5)
  1. LEVETIRACETAM [Suspect]
     Active Substance: LEVETIRACETAM
     Indication: Product used for unknown indication
     Dosage: THERAPY START DATE: ASKED BUT UNKNOWN
     Route: 065
     Dates: end: 20210211
  2. LEVETIRACETAM [Suspect]
     Active Substance: LEVETIRACETAM
     Indication: Product used for unknown indication
     Route: 065
     Dates: start: 20210212, end: 20210212
  3. FYCOMPA [Suspect]
     Active Substance: PERAMPANEL
     Indication: Product used for unknown indication
     Dosage: THERAPY START DATE ASKED BUT UNKNOWN
     Route: 048
     Dates: end: 20210211
  4. FYCOMPA [Suspect]
     Active Substance: PERAMPANEL
     Indication: Product used for unknown indication
     Dosage: 3 - 4 12 MG TABLETS
     Route: 048
     Dates: start: 20210212, end: 20210212
  5. LACOSAMIDE [Suspect]
     Active Substance: LACOSAMIDE
     Indication: Product used for unknown indication
     Dosage: FIRST DOSE 1500 MG AND SECOND DOSE 1000 MG DAILY, THERAPY START DATE ASKED BUT UNKNOWN
     Route: 065

REACTIONS (7)
  - Suicidal ideation [Unknown]
  - Dehydration [Unknown]
  - Hypotension [Recovered/Resolved]
  - Restlessness [Unknown]
  - Abnormal behaviour [Unknown]
  - Agitation [Recovering/Resolving]
  - Intentional overdose [Recovered/Resolved]

NARRATIVE: CASE EVENT DATE: 20210201
